FAERS Safety Report 23486802 (Version 1)
Quarter: 2024Q1

REPORT INFORMATION
  Report Type: Spontaneous
  Country: IN (occurrence: IN)
  Receive Date: 20240206
  Receipt Date: 20240206
  Transmission Date: 20240410
  Serious: Yes (Other)
  Sender: FDA-Public Use
  Company Number: IN-PFIZER INC-PV202400016265

PATIENT
  Age: 61 Year
  Sex: Female
  Weight: 78 kg

DRUGS (1)
  1. LORLATINIB [Suspect]
     Active Substance: LORLATINIB
     Indication: Lung neoplasm malignant
     Dosage: 100 MG, 1X/DAY
     Route: 048
     Dates: start: 20231226

REACTIONS (4)
  - Blood pressure increased [Unknown]
  - Asthenia [Unknown]
  - Swelling [Unknown]
  - Rash [Unknown]
